FAERS Safety Report 13900914 (Version 1)
Quarter: 2017Q3

REPORT INFORMATION
  Report Type: Spontaneous
  Country: US (occurrence: US)
  Receive Date: 20170824
  Receipt Date: 20170824
  Transmission Date: 20171127
  Serious: Yes (Other)
  Sender: FDA-Public Use
  Company Number: US-ROCHE-1980351

PATIENT
  Sex: Male

DRUGS (1)
  1. ACTEMRA [Suspect]
     Active Substance: TOCILIZUMAB
     Indication: POLYARTHRITIS
     Dosage: DOSAGE STRENGHT :162MG/0.9 ML.
     Route: 058
     Dates: start: 20170807, end: 20170812

REACTIONS (5)
  - Cough [Unknown]
  - Chest discomfort [Unknown]
  - Cold sweat [Unknown]
  - Pruritus [Unknown]
  - Palpitations [Unknown]
